FAERS Safety Report 8318563 (Version 2)
Quarter: 2012Q4

REPORT INFORMATION
  Report Type: Report from Study
  Country: US (occurrence: US)
  Receive Date: 20120103
  Receipt Date: 20120828
  Transmission Date: 20130627
  Serious: Yes (Other)
  Sender: FDA-Public Use
  Company Number: US-PFIZER INC-2011152631

PATIENT
  Age: 36 Year
  Sex: Female

DRUGS (1)
  1. GEODON [Suspect]
     Dosage: 80 mg, UNK

REACTIONS (3)
  - Memory impairment [Unknown]
  - Fear [Unknown]
  - Feeling of despair [Unknown]
